FAERS Safety Report 4886748-3 (Version None)
Quarter: 2006Q1

REPORT INFORMATION
  Report Type: 
  Country: None (occurrence: None)
  Receive Date: 20060120
  Receipt Date: 20060109
  Transmission Date: 20060701
  Serious: Yes (Other)
  Sender: FDA-Public Use
  Company Number: AU-ROCHE-431186

PATIENT
  Sex: Female

DRUGS (1)
  1. ROACCUTANE [Suspect]
     Indication: DRUG USE FOR UNKNOWN INDICATION
     Dosage: 5.0 DOSE UNSPECIFIED.
     Route: 048
     Dates: start: 19991201, end: 19991215

REACTIONS (2)
  - NO ADVERSE EFFECT [None]
  - PREGNANCY [None]
